FAERS Safety Report 8922888 (Version 1)
Quarter: 2012Q4

REPORT INFORMATION
  Report Type: Spontaneous
  Country: US (occurrence: None)
  Receive Date: 20121109
  Receipt Date: 20121109
  Transmission Date: 20130627
  Serious: Yes (Other)
  Sender: FDA-Public Use
  Company Number: 2011S1000898

PATIENT

DRUGS (1)
  1. CUBICIN [Suspect]
     Indication: SKIN INFECTION

REACTIONS (1)
  - Blood pressure increased [None]
